FAERS Safety Report 6670990-5 (Version None)
Quarter: 2010Q2

REPORT INFORMATION
  Report Type: 
  Country: None (occurrence: None)
  Receive Date: 20100407
  Receipt Date: 20100325
  Transmission Date: 20101027
  Serious: Yes (Hospitalization, Other)
  Sender: FDA-Public Use
  Company Number: PHHY2010FR18806

PATIENT
  Sex: Female

DRUGS (10)
  1. COTAREG [Suspect]
     Dosage: UNK
     Dates: end: 20100226
  2. GLIMEPIRIDE [Concomitant]
     Indication: TYPE 2 DIABETES MELLITUS
     Dosage: 3 MONTHS
     Route: 048
  3. LYSANXIA [Concomitant]
     Dosage: 10 MG
  4. LEVOTHYROX [Concomitant]
     Indication: HYPOTHYROIDISM
     Dosage: 1 DF, QD
  5. NOCTRAN [Concomitant]
     Dosage: 0.5 DF, QD
  6. FENOFIBRATE [Concomitant]
     Indication: HYPERCHOLESTEROLAEMIA
     Dosage: 300 MG QF
  7. AMLODIPINE [Concomitant]
     Indication: HYPERTENSION
     Dosage: 5 MG
  8. AMLODIPINE [Concomitant]
     Dosage: 10 MG DAILY
  9. PARACETAMOL [Concomitant]
     Dosage: 3 G DAILY
  10. DOMPERIDONE [Concomitant]
     Dosage: 30 MG DAILY
     Dates: end: 20100226

REACTIONS (9)
  - AMNESIA [None]
  - APHASIA [None]
  - BACK PAIN [None]
  - BLOOD PRESSURE DECREASED [None]
  - HYPOGLYCAEMIA [None]
  - HYPONATRAEMIA [None]
  - OEDEMA PERIPHERAL [None]
  - RENAL FAILURE [None]
  - VISION BLURRED [None]
